FAERS Safety Report 4296004-2 (Version None)
Quarter: 2004Q1

REPORT INFORMATION
  Report Type: 
  Country: None (occurrence: None)
  Receive Date: 20040212
  Receipt Date: 20040202
  Transmission Date: 20041129
  Serious: No
  Sender: FDA-Public Use
  Company Number: 04P-163-0249338-00

PATIENT
  Age: 31 Year
  Sex: Female

DRUGS (2)
  1. NORVIR [Suspect]
     Indication: HIV INFECTION
     Dosage: 200 MG, ORAL
     Route: 048
     Dates: start: 20031104, end: 20031117
  2. FOSAMPRENAVIR [Suspect]
     Indication: HIV INFECTION
     Dosage: 1400 MG, ORAL
     Route: 048
     Dates: start: 20031104, end: 20031117

REACTIONS (4)
  - ABORTION INDUCED [None]
  - COMPLICATIONS OF MATERNAL EXPOSURE TO THERAPEUTIC DRUGS [None]
  - MATERNAL DRUGS AFFECTING FOETUS [None]
  - PREGNANCY [None]
